FAERS Safety Report 25762605 (Version 4)
Quarter: 2025Q4

REPORT INFORMATION
  Report Type: Report from Study
  Country: CA (occurrence: CA)
  Receive Date: 20250904
  Receipt Date: 20251119
  Transmission Date: 20260119
  Serious: Yes (Hospitalization, Other)
  Sender: PFIZER
  Company Number: CA-PFIZER INC-202500175163

PATIENT
  Age: 45 Year
  Sex: Male

DRUGS (4)
  1. HADLIMA [Suspect]
     Active Substance: ADALIMUMAB-BWWD
     Indication: Psoriatic arthropathy
     Dosage: 40 MG, 1 EVERY 2 WEEKS
  2. HADLIMA [Suspect]
     Active Substance: ADALIMUMAB-BWWD
     Indication: Psoriatic arthropathy
     Dosage: 40 MG, 1 EVERY 2 WEEKS
  3. ATIVAN [Concomitant]
     Active Substance: LORAZEPAM
     Dosage: UNK
  4. NAPROXEN [Concomitant]
     Active Substance: NAPROXEN
     Dosage: UNK

REACTIONS (8)
  - Alcohol withdrawal syndrome [Recovering/Resolving]
  - Arthralgia [Recovering/Resolving]
  - Cardiac arrest [Recovering/Resolving]
  - Gait disturbance [Recovering/Resolving]
  - Neurogenic shock [Recovering/Resolving]
  - Oedema peripheral [Recovering/Resolving]
  - Pain [Recovering/Resolving]
  - Swelling [Recovering/Resolving]
